FAERS Safety Report 14417978 (Version 1)
Quarter: 2018Q1

REPORT INFORMATION
  Report Type: Spontaneous
  Country: US (occurrence: US)
  Receive Date: 20180122
  Receipt Date: 20180122
  Transmission Date: 20180509
  Serious: No
  Sender: FDA-Public Use
  Company Number: US-INTERCEPT-PMOCA2017001128

PATIENT

DRUGS (7)
  1. OCALIVA [Suspect]
     Active Substance: OBETICHOLIC ACID
     Indication: PRIMARY BILIARY CHOLANGITIS
     Dosage: 5 MG, QD
     Route: 048
     Dates: start: 20170510, end: 201710
  2. CA [Concomitant]
  3. ZOLPIDEM [Concomitant]
     Active Substance: ZOLPIDEM\ZOLPIDEM TARTRATE
  4. OMEPRA [Concomitant]
  5. ZINC. [Concomitant]
     Active Substance: ZINC
  6. URSODIOL. [Concomitant]
     Active Substance: URSODIOL
  7. MULTIVITAMIN [Concomitant]
     Active Substance: VITAMINS

REACTIONS (4)
  - Tremor [Unknown]
  - Pyrexia [Unknown]
  - Chills [Unknown]
  - Fluid retention [Unknown]

NARRATIVE: CASE EVENT DATE: 201710
